FAERS Safety Report 9931724 (Version 1)
Quarter: 2014Q1

REPORT INFORMATION
  Report Type: Spontaneous
  Country: US (occurrence: US)
  Receive Date: 20140228
  Receipt Date: 20140228
  Transmission Date: 20141002
  Serious: No
  Sender: FDA-Public Use
  Company Number: US-BAYER-2014-031632

PATIENT
  Age: 51 Year
  Sex: Female
  Weight: 79.82 kg

DRUGS (2)
  1. CLIMARA [Suspect]
     Indication: MENOPAUSAL SYMPTOMS
     Dosage: 0.05 MG, QD
     Route: 062
     Dates: start: 20140206, end: 20140223
  2. PROMETRIUM [Concomitant]
     Indication: MENOPAUSAL SYMPTOMS
     Dosage: UNK UNK, QD
     Route: 048
     Dates: start: 20140212, end: 20140223

REACTIONS (5)
  - Pruritus [Not Recovered/Not Resolved]
  - Erythema [Not Recovered/Not Resolved]
  - Urticaria [Not Recovered/Not Resolved]
  - Burning sensation [Not Recovered/Not Resolved]
  - Inappropriate schedule of drug administration [None]
